FAERS Safety Report 9693248 (Version 1)
Quarter: 2013Q4

REPORT INFORMATION
  Report Type: Spontaneous
  Country: US (occurrence: US)
  Receive Date: 20131118
  Receipt Date: 20131118
  Transmission Date: 20140711
  Serious: No
  Sender: FDA-Public Use
  Company Number: US-BAYER-2013-140958

PATIENT
  Age: 24 Year
  Sex: Male
  Weight: 90.7 kg

DRUGS (2)
  1. ALEVE CAPLET [Suspect]
     Indication: ANALGESIC THERAPY
     Dosage: 3 DF, ONCE
     Route: 048
     Dates: start: 20131114
  2. MULTIVITAMIN [Concomitant]

REACTIONS (1)
  - Incorrect dose administered [None]
